FAERS Safety Report 16048080 (Version 2)
Quarter: 2019Q2

REPORT INFORMATION
  Report Type: Report from Study
  Country: FR (occurrence: FR)
  Receive Date: 20190307
  Receipt Date: 20190529
  Transmission Date: 20190711
  Serious: Yes (Other)
  Sender: FDA-Public Use
  Company Number: FR-PROVELL PHARMACEUTICALS-2063668

PATIENT
  Sex: Female

DRUGS (3)
  1. EUTHYROX [Suspect]
     Active Substance: LEVOTHYROXINE SODIUM
  2. EUTHYROX [Suspect]
     Active Substance: LEVOTHYROXINE SODIUM
     Indication: HYPOTHYROIDISM
  3. EUTHYROX [Suspect]
     Active Substance: LEVOTHYROXINE SODIUM
     Indication: BASEDOW^S DISEASE

REACTIONS (8)
  - Flatulence [Recovering/Resolving]
  - Tremor [Recovering/Resolving]
  - Palpitations [Recovered/Resolved]
  - Myalgia [Recovering/Resolving]
  - Insomnia [Recovered/Resolved]
  - Feeling drunk [Not Recovered/Not Resolved]
  - Syncope [None]
  - Dizziness [Recovering/Resolving]
